FAERS Safety Report 16646492 (Version 3)
Quarter: 2019Q4

REPORT INFORMATION
  Report Type: Spontaneous
  Country: US (occurrence: US)
  Receive Date: 20190730
  Receipt Date: 20191002
  Transmission Date: 20200122
  Serious: Yes (Other)
  Sender: FDA-Public Use
  Company Number: US-PFIZER INC-2019320678

PATIENT
  Age: 75 Year
  Sex: Female
  Weight: 90 kg

DRUGS (20)
  1. VIT D [Concomitant]
     Active Substance: VITAMIN D NOS
     Indication: BONE DISORDER
     Dosage: 2000 MG, ONCE DAILY (TWO 1000 MG, TABLETS, ONCE DAILY)
     Route: 048
  2. SYMBICORT [Concomitant]
     Active Substance: BUDESONIDE\FORMOTEROL FUMARATE DIHYDRATE
     Indication: DYSPNOEA
     Dosage: 2 DF, TWICE DAILY (2 PUFFS, TWICE A DAY)
  3. PRAVASTATIN. [Concomitant]
     Active Substance: PRAVASTATIN
     Indication: BLOOD CHOLESTEROL
     Dosage: 40 MG, ONCE DAILY
     Route: 048
  4. ASMANEX [Concomitant]
     Active Substance: MOMETASONE FUROATE
     Indication: DYSPNOEA
     Dosage: 20 MG, AS NEEDED (220 MG PER PRESSING THE DOSE, AS NEEDED)
  5. ASPIRIN [ACETYLSALICYLIC ACID] [Concomitant]
     Active Substance: ASPIRIN
     Indication: ANTICOAGULANT THERAPY
     Dosage: 81 MG, ALTERNATE DAY (EVERY OTHER DAY)
     Route: 048
  6. FLUOXETINE [Concomitant]
     Active Substance: FLUOXETINE HYDROCHLORIDE
     Indication: DEPRESSION
     Dosage: 10 MG, ONCE DAILY
     Route: 048
  7. RANITIDINE HCL [Concomitant]
     Active Substance: RANITIDINE HYDROCHLORIDE
     Indication: GASTRIC DISORDER
     Dosage: 150 MG, TWICE DAILY
     Route: 048
  8. ACETYLCYSTEINE. [Concomitant]
     Active Substance: ACETYLCYSTEINE
     Indication: DYSPNOEA
     Dosage: 600 MG, TWICE DAILY
     Route: 048
  9. LYRICA [Suspect]
     Active Substance: PREGABALIN
     Indication: NEUROPATHY PERIPHERAL
     Dosage: 150 MG, TWICE DAILY
     Route: 048
     Dates: start: 20170815
  10. DILTIAZEM. [Concomitant]
     Active Substance: DILTIAZEM
     Indication: BLOOD PRESSURE ABNORMAL
  11. THEOPHYLLINE [Concomitant]
     Active Substance: THEOPHYLLINE ANHYDROUS
     Indication: DYSPNOEA
     Dosage: 300 MG, ONCE DAILY
     Route: 048
  12. SPIRIVA [Concomitant]
     Active Substance: TIOTROPIUM BROMIDE MONOHYDRATE
     Indication: DYSPNOEA
     Dosage: 2 DF, ONCE DAILY (2 PUFFS, ONCE A DAY)
  13. METHYLPREDNISOLONE. [Concomitant]
     Active Substance: METHYLPREDNISOLONE
     Indication: LUNG DISORDER
     Dosage: 4 MG, ONCE DAILY
     Route: 048
  14. WELLBUTRIN [Concomitant]
     Active Substance: BUPROPION HYDROCHLORIDE
     Indication: DEPRESSION
     Dosage: 100 MG, ONCE DAILY
     Route: 048
  15. DILTIAZEM. [Concomitant]
     Active Substance: DILTIAZEM
     Indication: CARDIAC DISORDER
     Dosage: 180 MG, ONCE DAILY
     Route: 048
  16. PRAVASTATIN. [Concomitant]
     Active Substance: PRAVASTATIN
     Dosage: 80 MG, UNK
     Route: 048
  17. POTASSIUM CHLORIDE. [Concomitant]
     Active Substance: POTASSIUM CHLORIDE
     Indication: FLUID RETENTION
     Dosage: 10 MG, ALTERNATE DAY (EVERY OTHER DAY)
     Route: 048
  18. MAGNESIUM [Concomitant]
     Active Substance: MAGNESIUM
     Indication: OSTEOPOROSIS
     Dosage: 400 MG, ONCE DAILY
     Route: 048
  19. MAGNESIUM [Concomitant]
     Active Substance: MAGNESIUM
     Indication: SUPPLEMENTATION THERAPY
  20. FUROSEMIDE. [Concomitant]
     Active Substance: FUROSEMIDE
     Indication: FLUID RETENTION
     Dosage: 40 MG, ALTERNATE DAY (EVERY OTHER DAY)
     Route: 048

REACTIONS (3)
  - Haemorrhage [Recovered/Resolved]
  - Weight decreased [Unknown]
  - Skin laceration [Recovered/Resolved]

NARRATIVE: CASE EVENT DATE: 20190713
